FAERS Safety Report 7658239-8 (Version None)
Quarter: 2011Q3

REPORT INFORMATION
  Report Type: 
  Country: None (occurrence: None)
  Receive Date: 20110802
  Receipt Date: 20110719
  Transmission Date: 20111222
  Serious: Yes (Other)
  Sender: FDA-Public Use
  Company Number: 2011MA009459

PATIENT
  Age: 26 Year
  Sex: Female

DRUGS (1)
  1. DIAZEPAM [Suspect]
     Dosage: ;PO
     Route: 048
     Dates: start: 19941201

REACTIONS (6)
  - INITIAL INSOMNIA [None]
  - RESPIRATORY ARREST [None]
  - DEPRESSED MOOD [None]
  - DRUG DEPENDENCE [None]
  - TREMOR [None]
  - RESTLESSNESS [None]
